FAERS Safety Report 7366395-4 (Version None)
Quarter: 2011Q1

REPORT INFORMATION
  Report Type: 
  Country: None (occurrence: None)
  Receive Date: 20110322
  Receipt Date: 20110315
  Transmission Date: 20110831
  Serious: Yes (Hospitalization)
  Sender: FDA-Public Use
  Company Number: FR-BRISTOL-MYERS SQUIBB COMPANY-15613714

PATIENT
  Age: 83 Year
  Sex: Male

DRUGS (11)
  1. ASPEGIC 325 [Suspect]
     Indication: INFARCTION
     Dosage: INTER ON 6JAN2011 AND RESTARTED
     Route: 048
     Dates: start: 20100830
  2. OMEPRAZOLE [Concomitant]
  3. ASPIRIN [Concomitant]
  4. ELISOR TABS 20 MG [Suspect]
     Indication: INFARCTION
     Dosage: 1DF:ONE SCORED TABLET
     Route: 048
     Dates: start: 20100830, end: 20110106
  5. PARACETAMOL [Concomitant]
     Dosage: ALSO TAKEN ON 6JAN2011
  6. METFORMIN [Concomitant]
  7. ARAVA [Suspect]
     Indication: INFARCTION
     Dates: start: 20030101, end: 20100830
  8. PREDNISONE [Concomitant]
     Dosage: INTER AND RESTARTED
  9. LANTUS [Concomitant]
  10. PLAVIX [Suspect]
     Indication: INFARCTION
     Dosage: PLAVIX TABS 75MG 1 DF:ONE COATED TABLET
     Route: 048
     Dates: start: 20100830, end: 20110106
  11. CARDENSIEL [Suspect]
     Indication: INFARCTION
     Dosage: CARDENSIEL 2.5MG 1 DF:ONE COATED SCORED TABLET  INTER ON 6JAN2011 AND RESTARTED
     Route: 048
     Dates: start: 20100430

REACTIONS (6)
  - AGRANULOCYTOSIS [None]
  - PYREXIA [None]
  - HYPOALBUMINAEMIA [None]
  - HYPERGAMMAGLOBULINAEMIA [None]
  - URINARY TRACT INFECTION [None]
  - CHOLESTASIS [None]
